FAERS Safety Report 25246805 (Version 1)
Quarter: 2025Q2

REPORT INFORMATION
  Report Type: Spontaneous
  Country: US (occurrence: US)
  Receive Date: 20250428
  Receipt Date: 20250428
  Transmission Date: 20250717
  Serious: No
  Sender: PADAGIS
  Company Number: US-PADAGIS-2025PAD00445

PATIENT

DRUGS (1)
  1. HYDROCORTISONE [Suspect]
     Active Substance: HYDROCORTISONE
     Indication: Rash pruritic
     Route: 065

REACTIONS (1)
  - Therapy partial responder [Unknown]
